FAERS Safety Report 8185673-2 (Version None)
Quarter: 2012Q1

REPORT INFORMATION
  Report Type: 
  Country: None (occurrence: None)
  Receive Date: 20120305
  Receipt Date: 20120223
  Transmission Date: 20120608
  Serious: Yes (Other)
  Sender: FDA-Public Use
  Company Number: AE-ROCHE-1044706

PATIENT
  Sex: Female
  Weight: 74 kg

DRUGS (4)
  1. FLUTICASONE PROPIONATE/SALMETEROL [Concomitant]
  2. THEOPHYLLINE [Concomitant]
  3. SINGULAIR [Concomitant]
  4. XOLAIR [Suspect]
     Indication: PRODUCT USED FOR UNKNOWN INDICATION
     Route: 058
     Dates: start: 20110426, end: 20111213

REACTIONS (3)
  - VISUAL IMPAIRMENT [None]
  - OPTIC NERVE DISORDER [None]
  - BLINDNESS [None]
